FAERS Safety Report 11825344 (Version 2)
Quarter: 2016Q3

REPORT INFORMATION
  Report Type: Spontaneous
  Country: JP (occurrence: JP)
  Receive Date: 20151211
  Receipt Date: 20160729
  Transmission Date: 20161109
  Serious: Yes (Hospitalization)
  Sender: FDA-Public Use
  Company Number: JP-BRISTOL-MYERS SQUIBB COMPANY-BMS-2015-084236

PATIENT
  Age: 23 Year
  Sex: Male
  Weight: 106 kg

DRUGS (10)
  1. LEVOTHYROXINE. [Concomitant]
     Active Substance: LEVOTHYROXINE
     Indication: HYPOPITUITARISM
     Route: 065
  2. DDAVP [Concomitant]
     Active Substance: DESMOPRESSIN ACETATE
     Indication: HYPOPITUITARISM
     Route: 065
  3. METFORMIN HYDROCHLORIDE. [Suspect]
     Active Substance: METFORMIN HYDROCHLORIDE
     Indication: DIABETES MELLITUS
     Route: 048
  4. SITAGLIPTIN PHOSPHATE [Concomitant]
     Active Substance: SITAGLIPTIN PHOSPHATE
     Indication: DIABETES MELLITUS
     Route: 065
  5. HYDROCORTISONE. [Concomitant]
     Active Substance: HYDROCORTISONE
     Indication: DIABETES INSIPIDUS
  6. TESTOSTERONE ENANTHATE. [Concomitant]
     Active Substance: TESTOSTERONE ENANTHATE
     Indication: PRODUCT USED FOR UNKNOWN INDICATION
     Route: 030
  7. HYDROCORTISONE. [Concomitant]
     Active Substance: HYDROCORTISONE
     Indication: HYPOPITUITARISM
     Route: 065
  8. URSODEOXYCHOLIC ACID [Concomitant]
     Active Substance: URSODIOL
     Indication: LIVER DISORDER
     Route: 065
  9. LEVOTHYROXINE. [Concomitant]
     Active Substance: LEVOTHYROXINE
     Indication: DIABETES INSIPIDUS
  10. DDAVP [Concomitant]
     Active Substance: DESMOPRESSIN ACETATE
     Indication: DIABETES INSIPIDUS

REACTIONS (3)
  - Decreased appetite [Unknown]
  - Insomnia [Unknown]
  - Malaise [Unknown]
